FAERS Safety Report 9564129 (Version 4)
Quarter: 2014Q4

REPORT INFORMATION
  Report Type: Spontaneous
  Country: US (occurrence: US)
  Receive Date: 20130929
  Receipt Date: 20141014
  Transmission Date: 20150529
  Serious: Yes (Death)
  Sender: FDA-Public Use
  Company Number: US-JNJFOC-20130913329

PATIENT
  Age: 71 Year
  Sex: Female
  Weight: 81.19 kg

DRUGS (23)
  1. TYLENOL EXTRA STRENGTH [Suspect]
     Active Substance: ACETAMINOPHEN
     Indication: SLEEP DISORDER THERAPY
     Dosage: 1 TO 2 EVERY NIGHT, AS NEEDED
     Route: 048
     Dates: start: 2007, end: 2011
  2. ALLEGRA [Concomitant]
     Active Substance: FEXOFENADINE HYDROCHLORIDE
     Indication: HEADACHE
     Dosage: AS NEEDED
     Route: 065
  3. ALAVERT ALLERGY [Concomitant]
     Active Substance: LORATADINE
     Indication: HEADACHE
     Dosage: AS NEEDED
     Route: 065
  4. CIPRO [Concomitant]
     Active Substance: CIPROFLOXACIN HYDROCHLORIDE
     Indication: PRODUCT USED FOR UNKNOWN INDICATION
     Route: 048
  5. IMODIUM [Concomitant]
     Active Substance: LOPERAMIDE HYDROCHLORIDE
     Indication: PRODUCT USED FOR UNKNOWN INDICATION
     Dosage: AFTER EACH WATERY STOOL (DO NOT  EXCEED 8 CAPS/DAY)
     Route: 065
  6. TYLENOL EXTRA STRENGTH NIGHTTIME [Suspect]
     Active Substance: ACETAMINOPHEN\DIPHENHYDRAMINE HYDROCHLORIDE
     Indication: PRODUCT USED FOR UNKNOWN INDICATION
     Dosage: OCCASIONALLY
     Route: 065
     Dates: start: 200705, end: 20110913
  7. SYNTHROID [Concomitant]
     Active Substance: LEVOTHYROXINE SODIUM
     Indication: HYPOTHYROIDISM
     Route: 048
  8. ALLEGRA [Concomitant]
     Active Substance: FEXOFENADINE HYDROCHLORIDE
     Indication: SINUS CONGESTION
     Dosage: AS NEEDED
     Route: 065
  9. ALEVE [Concomitant]
     Active Substance: NAPROXEN SODIUM
     Indication: SCIATICA
     Dosage: AS NEEDED
     Route: 065
  10. TYLENOL EXTRA STRENGTH [Suspect]
     Active Substance: ACETAMINOPHEN
     Indication: INFLUENZA LIKE ILLNESS
     Route: 048
  11. NORMAL SALINE [Concomitant]
     Active Substance: SODIUM CHLORIDE
     Indication: FLUID REPLACEMENT
     Route: 065
  12. SYNTHROID [Concomitant]
     Active Substance: LEVOTHYROXINE SODIUM
     Indication: HYPOTHYROIDISM
     Route: 048
  13. PLENDIL [Concomitant]
     Active Substance: FELODIPINE
     Indication: HYPOTHYROIDISM
     Route: 065
  14. HERBAL MEDICATION [Concomitant]
     Active Substance: HERBALS
     Indication: PRODUCT USED FOR UNKNOWN INDICATION
     Route: 065
  15. NIZORAL [Concomitant]
     Active Substance: KETOCONAZOLE
     Indication: RASH
     Dosage: 2%
     Route: 065
  16. TYLENOL EXTRA STRENGTH [Suspect]
     Active Substance: ACETAMINOPHEN
     Indication: SLEEP DISORDER THERAPY
     Route: 048
  17. VITAMIN C [Concomitant]
     Active Substance: ASCORBIC ACID
     Indication: PRODUCT USED FOR UNKNOWN INDICATION
     Route: 065
  18. TYLENOL EXTRA STRENGTH [Suspect]
     Active Substance: ACETAMINOPHEN
     Indication: INFLUENZA LIKE ILLNESS
     Dosage: 1 TO 2 EVERY NIGHT, AS NEEDED
     Route: 048
     Dates: start: 2007, end: 2011
  19. TYLENOL [Suspect]
     Active Substance: ACETAMINOPHEN
     Indication: PRODUCT USED FOR UNKNOWN INDICATION
     Route: 065
     Dates: start: 2007, end: 2011
  20. ALAVERT ALLERGY [Concomitant]
     Active Substance: LORATADINE
     Indication: SINUS CONGESTION
     Dosage: AS NEEDED
     Route: 065
  21. FISH OIL [Concomitant]
     Active Substance: FISH OIL
     Indication: PRODUCT USED FOR UNKNOWN INDICATION
     Dosage: CAPS
     Route: 065
  22. TYLENOL [Suspect]
     Active Substance: ACETAMINOPHEN
     Route: 065
  23. COMPAZINE [Concomitant]
     Active Substance: PROCHLORPERAZINE MALEATE
     Indication: NAUSEA
     Dosage: AS NEEDED FOR NAUSEA
     Route: 048

REACTIONS (18)
  - Hepatic cirrhosis [Fatal]
  - Sepsis [Fatal]
  - Ascites [Unknown]
  - Coagulopathy [Unknown]
  - Hepatic failure [Unknown]
  - Anaemia [Unknown]
  - Product use issue [Unknown]
  - Hypotension [Unknown]
  - Urinary tract infection [Unknown]
  - Peritonitis bacterial [Unknown]
  - Renal failure [Fatal]
  - Cardiac failure [Unknown]
  - Respiratory distress [Unknown]
  - Dehydration [Unknown]
  - Thrombocytosis [Unknown]
  - Brain natriuretic peptide abnormal [Unknown]
  - Somnolence [Unknown]
  - Product quality issue [Unknown]

NARRATIVE: CASE EVENT DATE: 20100310
